FAERS Safety Report 17493770 (Version 1)
Quarter: 2020Q1

REPORT INFORMATION
  Report Type: Spontaneous
  Country: GB (occurrence: GB)
  Receive Date: 20200304
  Receipt Date: 20200304
  Transmission Date: 20200409
  Serious: Yes (Other)
  Sender: FDA-Public Use
  Company Number: GB-ACCORD-174618

PATIENT
  Age: 66 Year
  Sex: Female
  Weight: 68.03 kg

DRUGS (2)
  1. ACCORD HEALTHCARE SIMVASTATIN [Suspect]
     Active Substance: SIMVASTATIN
     Indication: BLOOD CHOLESTEROL INCREASED
     Route: 048
     Dates: start: 201911, end: 202001
  2. LEMSIP MAX [Concomitant]
     Active Substance: ACETAMINOPHEN\CAFFEINE\GUAIFENESIN\PHENYLEPHRINE

REACTIONS (1)
  - Abnormal dreams [Recovered/Resolved]

NARRATIVE: CASE EVENT DATE: 201912
